FAERS Safety Report 5010602-X (Version None)
Quarter: 2006Q2

REPORT INFORMATION
  Report Type: 
  Country: None (occurrence: None)
  Receive Date: 20060525
  Receipt Date: 20060516
  Transmission Date: 20061013
  Serious: Yes (Hospitalization)
  Sender: FDA-Public Use
  Company Number: PHEH2006US06573

PATIENT
  Age: 68 Year
  Sex: Male
  Weight: 90.702 kg

DRUGS (8)
  1. FORADIL [Suspect]
     Indication: CHRONIC OBSTRUCTIVE PULMONARY DISEASE
     Dosage: UNK, BID
     Dates: start: 20030801
  2. COMBIVENT [Suspect]
     Indication: CHRONIC OBSTRUCTIVE PULMONARY DISEASE
     Dosage: BID AND ^AS NEEDED ONCE IN A GREAT WHILE^
  3. FUROSEMIDE [Concomitant]
     Dosage: 20MG QAM
  4. COZAAR [Concomitant]
     Dosage: 50MG QAM
  5. LIPITOR [Concomitant]
     Dosage: 20MG QAM
  6. ASPIRIN [Concomitant]
     Dosage: 325MG QAM
  7. FEXOFENADINE [Concomitant]
  8. CIALIS [Concomitant]
     Dosage: UNK, PRN

REACTIONS (6)
  - BACK PAIN [None]
  - CATHETERISATION CARDIAC [None]
  - CORONARY ARTERY OCCLUSION [None]
  - STENT PLACEMENT [None]
  - SYNCOPE [None]
  - WEIGHT ABNORMAL [None]
